APPROVED DRUG PRODUCT: CEPHALEXIN
Active Ingredient: CEPHALEXIN
Strength: EQ 500MG BASE
Dosage Form/Route: CAPSULE;ORAL
Application: A062974 | Product #001
Applicant: APOTHECON INC DIV BRISTOL MYERS SQUIBB
Approved: Nov 23, 1988 | RLD: No | RS: No | Type: DISCN